FAERS Safety Report 9391474 (Version 1)
Quarter: 2013Q3

REPORT INFORMATION
  Report Type: Spontaneous
  Country: US (occurrence: US)
  Receive Date: 20130709
  Receipt Date: 20130709
  Transmission Date: 20140515
  Serious: Yes (Other)
  Sender: FDA-Public Use
  Company Number: US-GLAXOSMITHKLINE-A1029097A

PATIENT
  Age: 37 Year
  Sex: Female

DRUGS (21)
  1. BENLYSTA [Suspect]
     Indication: SYSTEMIC LUPUS ERYTHEMATOSUS
     Dosage: 640MG VARIABLE DOSE
     Route: 042
     Dates: start: 20111227
  2. NEXIUM [Concomitant]
  3. HYOSCYAMINE [Concomitant]
  4. TOPROL XL [Concomitant]
  5. TRILEPTAL [Concomitant]
  6. NYSTATIN [Concomitant]
  7. DIFLUCAN [Concomitant]
  8. PLAQUENIL [Concomitant]
  9. DEXEDRINE [Concomitant]
  10. FOCALIN [Concomitant]
  11. REMERON [Concomitant]
  12. ELAVIL [Concomitant]
  13. FIORICET [Concomitant]
  14. ALBUTEROL [Concomitant]
  15. SPIRIVA [Concomitant]
  16. POTASSIUM CHLORIDE [Concomitant]
  17. ALPRAZOLAM [Concomitant]
  18. CARAFATE [Concomitant]
  19. CELLCEPT [Concomitant]
  20. FOLIC ACID [Concomitant]
  21. SKELAXIN [Concomitant]

REACTIONS (6)
  - Systemic lupus erythematosus [Not Recovered/Not Resolved]
  - Chills [Unknown]
  - Systemic lupus erythematosus rash [Unknown]
  - Stomatitis [Unknown]
  - Skin ulcer [Unknown]
  - Pain [Unknown]
